FAERS Safety Report 5269929-9 (Version None)
Quarter: 2007Q1

REPORT INFORMATION
  Report Type: 
  Country: None (occurrence: None)
  Receive Date: 20070314
  Receipt Date: 20070228
  Transmission Date: 20070707
  Serious: Yes (Other)
  Sender: FDA-Public Use
  Company Number: 200612IM000693

PATIENT
  Age: 53 Year
  Sex: Female
  Weight: 68.0396 kg

DRUGS (1)
  1. INTERFERON GAMMA-1B [Suspect]
     Indication: IDIOPATHIC PULMONARY FIBROSIS
     Dosage: TIW, SUBCUTANEOUS
     Route: 058
     Dates: end: 20060630

REACTIONS (4)
  - CHEST PAIN [None]
  - OXYGEN SATURATION INCREASED [None]
  - PALPITATIONS [None]
  - PULMONARY OEDEMA [None]
